FAERS Safety Report 22710316 (Version 5)
Quarter: 2023Q4

REPORT INFORMATION
  Report Type: Spontaneous
  Country: US (occurrence: US)
  Receive Date: 20230717
  Receipt Date: 20231227
  Transmission Date: 20240109
  Serious: No
  Sender: FDA-Public Use
  Company Number: US-BIOGEN-2023BI01216019

PATIENT
  Age: 50 Year
  Sex: Female

DRUGS (1)
  1. VUMERITY [Suspect]
     Active Substance: DIROXIMEL FUMARATE
     Indication: Multiple sclerosis
     Route: 050
     Dates: start: 20230516

REACTIONS (13)
  - Accidental overdose [Unknown]
  - Product dose omission issue [Unknown]
  - Anxiety [Not Recovered/Not Resolved]
  - Arthralgia [Unknown]
  - Skin discolouration [Unknown]
  - Panic attack [Unknown]
  - Ear pain [Recovered/Resolved]
  - Dyspnoea [Recovered/Resolved]
  - Herpes zoster [Not Recovered/Not Resolved]
  - Erythema [Unknown]
  - Hot flush [Unknown]
  - Feeling hot [Recovered/Resolved]
  - Diarrhoea [Recovered/Resolved]

NARRATIVE: CASE EVENT DATE: 20230713
